FAERS Safety Report 8885214 (Version 1)
Quarter: 2012Q4

REPORT INFORMATION
  Report Type: 
  Country: US (occurrence: US)
  Receive Date: 20121105
  Receipt Date: 20121105
  Transmission Date: 20130627
  Serious: Yes (Other)
  Sender: FDA-Public Use
  Company Number: US-PAR PHARMACEUTICAL, INC-2012SCPR004686

PATIENT

DRUGS (1)
  1. BUPROPION HYDROCHLORIDE [Suspect]
     Indication: DEPRESSION
     Dosage: 1 tablet once daily
     Route: 048
     Dates: start: 20120809, end: 20121022

REACTIONS (8)
  - Tongue paralysis [Recovering/Resolving]
  - Expressive language disorder [Recovering/Resolving]
  - Amnesia [Recovering/Resolving]
  - Dizziness [Recovering/Resolving]
  - Mental impairment [Recovering/Resolving]
  - Feeling abnormal [Recovering/Resolving]
  - Drug ineffective [Unknown]
  - Product quality issue [Unknown]
